FAERS Safety Report 7089889-8 (Version None)
Quarter: 2010Q4

REPORT INFORMATION
  Report Type: 
  Country: None (occurrence: None)
  Receive Date: 20101108
  Receipt Date: 20101021
  Transmission Date: 20110411
  Serious: Yes (Other)
  Sender: FDA-Public Use
  Company Number: GB-AMGEN-US371024

PATIENT

DRUGS (37)
  1. ETANERCEPT [Suspect]
     Indication: RHEUMATOID ARTHRITIS
     Dosage: 25 MG, 2 TIMES/WK
     Route: 058
     Dates: start: 20070302
  2. AMLODIPINE [Suspect]
     Dosage: 5 MG TWO TABLETS
  3. PREDNISOLONE [Concomitant]
     Dosage: UNK UNK, UNK
     Route: 065
  4. PREDNISOLONE [Concomitant]
     Dosage: UNKNOWN
  5. PREDNISOLONE [Concomitant]
     Dosage: UNKNOWN
  6. CELECOXIB [Concomitant]
     Dosage: UNK UNK, UNK
     Route: 065
  7. CELECOXIB [Concomitant]
     Dosage: UNKNOWN
  8. CELECOXIB [Concomitant]
     Dosage: UNKNOWN
  9. FOLIC ACID [Concomitant]
     Dosage: UNK UNK, UNK
     Route: 065
  10. FOLIC ACID [Concomitant]
  11. OMEPRAZOLE [Concomitant]
     Dosage: UNK UNK, UNK
     Route: 065
  12. OMEPRAZOLE [Concomitant]
  13. METHOTREXATE [Concomitant]
     Dosage: UNK UNK, UNK
     Route: 065
  14. METHOTREXATE [Concomitant]
  15. CO-CODAMOL [Concomitant]
     Dosage: UNKNOWN
  16. CO-CODAMOL [Concomitant]
     Dosage: UNKNOWN
  17. DIDRONEL [Concomitant]
     Dosage: UNKNOWN
  18. DIDRONEL [Concomitant]
     Dosage: UNKNOWN
  19. MS CONTIN [Concomitant]
     Dosage: UNKNOWN
  20. MS CONTIN [Concomitant]
     Dosage: UNKNOWN
  21. ORAMORPH SR [Concomitant]
     Dosage: UNKNOWN
  22. ORAMORPH SR [Concomitant]
     Dosage: UNKNOWN
  23. RAMIPRIL [Concomitant]
  24. ASPIRIN [Concomitant]
  25. INDAPAMIDE [Concomitant]
  26. METFORMIN HCL [Concomitant]
  27. SIMVASTATIN [Concomitant]
  28. LANTUS [Concomitant]
     Dosage: UNKNOWN
  29. LANTUS [Concomitant]
     Dosage: UNKNOWN
  30. NOVORAPID [Concomitant]
     Dosage: UNKNOWN
  31. NOVORAPID [Concomitant]
     Dosage: UNKNOWN
  32. SILDENAFIL CITRATE [Concomitant]
     Dosage: 100 MG (FREQUENCY UNKNOWN)
  33. SILDENAFIL CITRATE [Concomitant]
     Dosage: 100 MG (FREQUENCY UNKNOWN)
  34. SERETIDE [Concomitant]
     Dosage: UNKNOWN
     Route: 055
  35. SERETIDE [Concomitant]
     Dosage: UNKNOWN
     Route: 055
  36. VENTOLIN [Concomitant]
     Dosage: UNKNOWN
     Route: 055
  37. VENTOLIN [Concomitant]
     Dosage: UNKNOWN
     Route: 055

REACTIONS (3)
  - CELLULITIS [None]
  - OEDEMA [None]
  - OEDEMA PERIPHERAL [None]
